FAERS Safety Report 20956045 (Version 2)
Quarter: 2022Q2

REPORT INFORMATION
  Report Type: Spontaneous
  Country: US (occurrence: None)
  Receive Date: 20220614
  Receipt Date: 20220615
  Transmission Date: 20220721
  Serious: No
  Sender: FDA-Public Use
  Company Number: US-MDD US Operations-MDD202202-000260

PATIENT
  Age: 65 Year
  Sex: Female

DRUGS (1)
  1. APOKYN [Suspect]
     Active Substance: APOMORPHINE HYDROCHLORIDE
     Indication: Parkinson^s disease
     Dosage: NOT PROVIDED

REACTIONS (6)
  - Renal pain [Unknown]
  - Blood glucose increased [Unknown]
  - Renal disorder [Unknown]
  - Vomiting [Unknown]
  - Therapy interrupted [Unknown]
  - Therapeutic product effect decreased [Unknown]
